FAERS Safety Report 4599045-0 (Version None)
Quarter: 2005Q1

REPORT INFORMATION
  Report Type: 
  Country: None (occurrence: None)
  Receive Date: 20050302
  Receipt Date: 20050215
  Transmission Date: 20050727
  Serious: Yes (Hospitalization)
  Sender: FDA-Public Use
  Company Number: 200501223

PATIENT
  Age: 77 Year
  Sex: Male

DRUGS (3)
  1. GATIFLOXACIN [Suspect]
     Indication: KERATITIS
     Dates: start: 20040922, end: 20041217
  2. COLIMY C (CHLORAMPHENICOL, COLISITIN SODIUM METHANESULFONATE) [Concomitant]
  3. HYALEIN (HYALURONATE SODIUM) [Concomitant]

REACTIONS (1)
  - CORNEAL PERFORATION [None]
